FAERS Safety Report 20069721 (Version 1)
Quarter: 2021Q4

REPORT INFORMATION
  Report Type: Report from Study
  Country: PY (occurrence: PY)
  Receive Date: 20211115
  Receipt Date: 20211115
  Transmission Date: 20220303
  Serious: Yes (Other)
  Sender: FDA-Public Use
  Company Number: PY-TAKEDA-2021TUS034706

PATIENT
  Age: 39 Year
  Sex: Female

DRUGS (3)
  1. VELAGLUCERASE ALFA [Suspect]
     Active Substance: VELAGLUCERASE ALFA
     Indication: Gaucher^s disease
     Dosage: 45 UI/KP
     Route: 042
     Dates: start: 2007
  2. VELAGLUCERASE ALFA [Suspect]
     Active Substance: VELAGLUCERASE ALFA
     Dosage: 45 UI/KP
     Route: 042
     Dates: start: 2007
  3. VALPROATE [Concomitant]
     Active Substance: VALPROIC ACID
     Dosage: 2000 MILLIGRAM, QD
     Route: 065

REACTIONS (2)
  - Seizure [Recovered/Resolved]
  - Dengue fever [Recovering/Resolving]

NARRATIVE: CASE EVENT DATE: 20210524
